FAERS Safety Report 7278132-2 (Version None)
Quarter: 2011Q1

REPORT INFORMATION
  Report Type: 
  Country: None (occurrence: None)
  Receive Date: 20110207
  Receipt Date: 20110203
  Transmission Date: 20110831
  Serious: Yes (Death, Hospitalization)
  Sender: FDA-Public Use
  Company Number: A0788940A

PATIENT
  Age: 47 Year
  Sex: Female
  Weight: 87.3 kg

DRUGS (13)
  1. ROBAXIN [Concomitant]
  2. CRESTOR [Concomitant]
  3. CELEXA [Concomitant]
  4. ZETIA [Concomitant]
  5. LYRICA [Concomitant]
  6. AVANDIA [Suspect]
     Indication: DIABETES MELLITUS
     Dosage: 4MG TWICE PER DAY
     Route: 048
     Dates: start: 20030101, end: 20080101
  7. LOTENSIN [Concomitant]
  8. AVANDAMET [Suspect]
     Indication: DIABETES MELLITUS
     Route: 048
  9. HUMULIN R [Concomitant]
  10. XANAX [Concomitant]
  11. ZANAFLEX [Concomitant]
  12. PAMELOR [Concomitant]
  13. LIPITOR [Concomitant]

REACTIONS (9)
  - CARDIAC FAILURE CONGESTIVE [None]
  - NAUSEA [None]
  - LUNG NEOPLASM MALIGNANT [None]
  - MYOCARDIAL INFARCTION [None]
  - ANGINA UNSTABLE [None]
  - BRAIN NEOPLASM MALIGNANT [None]
  - VOMITING [None]
  - PULMONARY OEDEMA [None]
  - CORONARY ARTERY STENOSIS [None]
